FAERS Safety Report 20470059 (Version 2)
Quarter: 2022Q3

REPORT INFORMATION
  Report Type: Report from Study
  Country: US (occurrence: US)
  Receive Date: 20220214
  Receipt Date: 20220913
  Transmission Date: 20221027
  Serious: No
  Sender: FDA-Public Use
  Company Number: US-KYOWAKIRIN-2022BKK001524

PATIENT

DRUGS (2)
  1. CRYSVITA [Suspect]
     Active Substance: BUROSUMAB-TWZA
     Indication: Hereditary hypophosphataemic rickets
     Dosage: 70 MG, 1X/4 WEEKS
     Route: 065
  2. CRYSVITA [Suspect]
     Active Substance: BUROSUMAB-TWZA
     Indication: Hereditary hypophosphataemic rickets
     Dosage: 80 MG 1X/4 WEEKS, UNDER THE SKIN
     Route: 065

REACTIONS (3)
  - Pain [Unknown]
  - Wisdom teeth removal [Unknown]
  - Product dose omission issue [Unknown]
